FAERS Safety Report 9532850 (Version 1)
Quarter: 2013Q2

REPORT INFORMATION
  Report Type: Spontaneous
  Country: US (occurrence: None)
  Receive Date: 20130418
  Receipt Date: 20130418
  Transmission Date: 20140414
  Serious: Yes (Other)
  Sender: FDA-Public Use
  Company Number: 2013PROUSA02494

PATIENT
  Age: 58 Year
  Sex: Male
  Weight: 107.3 kg

DRUGS (10)
  1. PROVENGE (SIPULEUCEL-T) SUSPENSION, 250ML [Suspect]
     Indication: PROSTATE CANCER METASTATIC
     Route: 042
     Dates: start: 20121130, end: 20121130
  2. CYCLOBENZAPRINE (CYCLOBENZAPRINE HYDROCHLORIDE) [Concomitant]
  3. HYDROCODONE (HYDROCODONE BITARTRATE) [Concomitant]
  4. LISINOPRIL [Concomitant]
  5. METFORMIN HCL (METFORMIN HYDROCHLORIDE) [Concomitant]
  6. CINNAMON [Concomitant]
  7. VITAMIN B12 (CYANOCOBALAMIN) [Concomitant]
  8. NABUMETONE [Concomitant]
  9. PRAVASTATIN SODIUM [Concomitant]
  10. CALCIUM +D (CALCIUM CARBONATE, COLECALCIFEROL) [Concomitant]

REACTIONS (1)
  - Culture positive [None]
